FAERS Safety Report 5376673-6 (Version None)
Quarter: 2007Q2

REPORT INFORMATION
  Report Type: 
  Country: None (occurrence: None)
  Receive Date: 20070629
  Receipt Date: 20070618
  Transmission Date: 20071010
  Serious: Yes (Other)
  Sender: FDA-Public Use
  Company Number: B0476287A

PATIENT

DRUGS (2)
  1. COMBIVIR [Suspect]
     Indication: HIV INFECTION
  2. NELFINAVIR MESYLATE (FORMULATION UNKNOWN) (NELFINAVIR MESYLATE) [Suspect]
     Indication: HIV INFECTION

REACTIONS (1)
  - PANCREATITIS [None]
